FAERS Safety Report 8384525-2 (Version None)
Quarter: 2012Q2

REPORT INFORMATION
  Report Type: 
  Country: None (occurrence: None)
  Receive Date: 20120524
  Receipt Date: 20120511
  Transmission Date: 20120825
  Serious: Yes (Other)
  Sender: FDA-Public Use
  Company Number: JP-JNJFOC-20120413373

PATIENT
  Age: 25 Year
  Sex: Female

DRUGS (9)
  1. INVEGA [Suspect]
     Route: 048
     Dates: start: 20120412
  2. LORAZEPAM [Concomitant]
     Indication: ANXIETY
     Route: 048
  3. INVEGA [Suspect]
     Route: 048
     Dates: start: 20120419
  4. INVEGA [Suspect]
     Route: 048
     Dates: start: 20120402
  5. ABILIFY [Concomitant]
     Route: 048
     Dates: end: 20120411
  6. LONASEN [Concomitant]
     Indication: SCHIZOPHRENIA
     Route: 048
  7. ABILIFY [Concomitant]
     Indication: SCHIZOPHRENIA
     Route: 048
     Dates: start: 20120412, end: 20120419
  8. PAXIL [Concomitant]
     Indication: PANIC DISORDER
     Route: 048
  9. INVEGA [Suspect]
     Indication: SCHIZOPHRENIA
     Route: 048
     Dates: start: 20120424

REACTIONS (1)
  - BINOCULAR EYE MOVEMENT DISORDER [None]
